FAERS Safety Report 7520858-7 (Version None)
Quarter: 2011Q2

REPORT INFORMATION
  Report Type: 
  Country: None (occurrence: None)
  Receive Date: 20110603
  Receipt Date: 20101004
  Transmission Date: 20111010
  Serious: Yes (Other)
  Sender: FDA-Public Use
  Company Number: US-BAYER-201019469NA

PATIENT
  Age: 44 Year
  Sex: Female
  Weight: 70.455 kg

DRUGS (11)
  1. LEXAPRO [Concomitant]
     Dates: start: 20050501, end: 20090301
  2. ELAVIL [Concomitant]
  3. IMITREX [Concomitant]
     Dates: start: 20050101, end: 20081201
  4. HYDROCODONE BITARTRATE [Concomitant]
     Dates: start: 20010201
  5. IMITREX [Concomitant]
     Dates: start: 20050101, end: 20081215
  6. YASMIN [Suspect]
     Indication: ORAL CONTRACEPTION
     Route: 048
     Dates: start: 20040101, end: 20060401
  7. IBUPROFEN [Concomitant]
     Dates: start: 20050801
  8. TRAMADOL HYDROCHLORIDE [Concomitant]
     Dates: start: 20041101
  9. ANTIMIGRAINE PREPARATIONS [Concomitant]
     Dates: start: 20050101, end: 20090301
  10. EFFEXOR [Concomitant]
  11. SUMATRIPTAN SUCCINATE [Concomitant]
     Dates: start: 20050101, end: 20090315

REACTIONS (6)
  - PAIN IN EXTREMITY [None]
  - CHOLELITHIASIS [None]
  - BILIARY COLIC [None]
  - OEDEMA PERIPHERAL [None]
  - CHOLECYSTITIS CHRONIC [None]
  - DEEP VEIN THROMBOSIS [None]
